FAERS Safety Report 10081909 (Version 2)
Quarter: 2014Q2

REPORT INFORMATION
  Report Type: Spontaneous
  Country: US (occurrence: US)
  Receive Date: 20140416
  Receipt Date: 20140620
  Transmission Date: 20141212
  Serious: Yes (Death, Hospitalization)
  Sender: FDA-Public Use
  Company Number: US-GLAXOSMITHKLINE-A1068898A

PATIENT
  Age: 73 Year
  Sex: Male

DRUGS (1)
  1. VENTOLIN [Suspect]
     Indication: LUNG DISORDER
     Dosage: 2PUFF TWICE PER DAY
     Route: 055
     Dates: start: 20140203

REACTIONS (3)
  - Oxygen saturation decreased [Unknown]
  - Drug ineffective [Unknown]
  - Death [Fatal]
